FAERS Safety Report 7380917-9 (Version None)
Quarter: 2011Q1

REPORT INFORMATION
  Report Type: 
  Country: None (occurrence: None)
  Receive Date: 20110329
  Receipt Date: 20110325
  Transmission Date: 20110831
  Serious: Yes (Death, Disabling, Other)
  Sender: FDA-Public Use
  Company Number: PHHY2010US39245

PATIENT
  Sex: Female
  Weight: 106 kg

DRUGS (5)
  1. VINCRISTINE [Concomitant]
     Dosage: UNK
     Dates: start: 20090801
  2. MERCAPTOPURINE [Concomitant]
     Dosage: UNK
     Dates: start: 20090801
  3. METHOTREXATE [Concomitant]
     Dosage: UNK
     Dates: start: 20090801
  4. EXJADE [Suspect]
     Indication: B PRECURSOR TYPE ACUTE LEUKAEMIA
     Dosage: 2000 MG, QD
     Route: 048
     Dates: start: 20100305
  5. EXJADE [Suspect]
     Indication: IRON OVERLOAD

REACTIONS (7)
  - DEATH [None]
  - ANAEMIA [None]
  - WHITE BLOOD CELL COUNT DECREASED [None]
  - NEUTROPENIA [None]
  - PANCYTOPENIA [None]
  - SERUM FERRITIN INCREASED [None]
  - HAEMOGLOBIN DECREASED [None]
